FAERS Safety Report 8758836 (Version 4)
Quarter: 2013Q1

REPORT INFORMATION
  Report Type: Spontaneous
  Country: IE (occurrence: IE)
  Receive Date: 20120829
  Receipt Date: 20130117
  Transmission Date: 20140127
  Serious: Yes (Death, Hospitalization, Other)
  Sender: FDA-Public Use
  Company Number: PHFR2012IE004686

PATIENT
  Age: 43 Year
  Sex: Female
  Weight: 75 kg

DRUGS (9)
  1. CLOZARIL [Suspect]
     Indication: SCHIZOPHRENIA
     Dosage: 900 MG, DAILY
     Route: 048
     Dates: start: 20040109
  2. BUSCOPAN [Concomitant]
     Indication: IRRITABLE BOWEL SYNDROME
     Dosage: 30 MG, DAILY
     Route: 048
     Dates: start: 2006
  3. MOTILIUM [Concomitant]
     Indication: IRRITABLE BOWEL SYNDROME
     Dosage: 20 MG, DAILY
     Route: 048
     Dates: start: 2006
  4. RIVOTRIL [Concomitant]
     Indication: ANXIETY
     Dosage: 1 MG, DAILY
     Route: 048
     Dates: start: 2006
  5. LEXAPRO [Concomitant]
     Indication: DEPRESSION
     Dosage: 10 MG, DAILY
     Route: 048
     Dates: start: 2006
  6. REGURIN [Concomitant]
     Dosage: 40 MG, DAILY
     Route: 048
  7. COLPERMIN [Concomitant]
     Dosage: 1 DF, TID
     Dates: start: 2008
  8. ABILIFY [Concomitant]
     Indication: SCHIZOPHRENIA
     Dosage: 15 MG, UNK
     Route: 048
     Dates: start: 20080211
  9. MOVICOL [Concomitant]
     Dosage: 1 DF, PRN
     Dates: start: 2008

REACTIONS (11)
  - Pulmonary embolism [Fatal]
  - Circulatory collapse [Fatal]
  - Dyspnoea [Fatal]
  - Cardiac arrest [Fatal]
  - Sepsis [Fatal]
  - Enterocolitis haemorrhagic [Fatal]
  - Bronchopneumonia [Fatal]
  - Gastric infection [Unknown]
  - Vomiting [Unknown]
  - Diarrhoea [Unknown]
  - Unresponsive to stimuli [Unknown]
